FAERS Safety Report 5573008-0 (Version None)
Quarter: 2007Q4

REPORT INFORMATION
  Report Type: 
  Country: None (occurrence: None)
  Receive Date: 20071224
  Receipt Date: 20071214
  Transmission Date: 20080405
  Serious: Yes (Death, Hospitalization)
  Sender: FDA-Public Use
  Company Number: FR-ROCHE-537244

PATIENT
  Age: 95 Year
  Sex: Male

DRUGS (5)
  1. ROCEPHIN [Suspect]
     Dosage: FORM REPORTED AS INJECTABLE SOLUTION.
     Route: 058
     Dates: start: 20071029, end: 20071110
  2. MINI-SINTROM [Concomitant]
     Dosage: DRUG REPORTED AS MINISINTROM.
     Route: 048
     Dates: end: 20071108
  3. PAROXETINE HCL [Concomitant]
     Dosage: STRENGTH: 20 MG/10 ML.
  4. ZESTRIL [Concomitant]
  5. LASILIX RETARD [Concomitant]

REACTIONS (3)
  - ANAEMIA [None]
  - PURPURA [None]
  - THROMBOCYTOPENIA [None]
